FAERS Safety Report 14749177 (Version 1)
Quarter: 2018Q2

REPORT INFORMATION
  Report Type: Spontaneous
  Country: US (occurrence: US)
  Receive Date: 20180411
  Receipt Date: 20180411
  Transmission Date: 20180711
  Serious: No
  Sender: FDA-Public Use
  Company Number: US-AMGEN-USASP2018011474

PATIENT
  Age: 84 Year
  Sex: Female

DRUGS (1)
  1. PROLIA [Suspect]
     Active Substance: DENOSUMAB
     Indication: OSTEOPOROSIS POSTMENOPAUSAL
     Dosage: 60 MG, Q6MO
     Route: 065
     Dates: start: 20180124

REACTIONS (10)
  - Breast pain [Unknown]
  - Toothache [Unknown]
  - Dizziness [Recovering/Resolving]
  - Abdominal pain upper [Recovered/Resolved]
  - Irritability [Unknown]
  - Pain in jaw [Recovering/Resolving]
  - Pain in extremity [Unknown]
  - Muscle spasms [Recovering/Resolving]
  - Nervousness [Unknown]
  - Back pain [Unknown]

NARRATIVE: CASE EVENT DATE: 2018
